FAERS Safety Report 17831363 (Version 1)
Quarter: 2020Q2

REPORT INFORMATION
  Report Type: Spontaneous
  Country: CA (occurrence: CA)
  Receive Date: 20200527
  Receipt Date: 20200527
  Transmission Date: 20200714
  Serious: Yes (Other)
  Sender: FDA-Public Use
  Company Number: CA-ANIPHARMA-2020-CA-000601

PATIENT
  Sex: Female

DRUGS (3)
  1. FASLODEX [Concomitant]
     Active Substance: FULVESTRANT
     Dosage: 500 MG DAILY
     Route: 030
     Dates: start: 202005
  2. ARIMIDEX [Suspect]
     Active Substance: ANASTROZOLE
     Indication: VULVAL CANCER
     Dosage: UNK
     Route: 048
     Dates: start: 202005
  3. IBRANCE [Concomitant]
     Active Substance: PALBOCICLIB
     Dosage: 125 MG DAILY
     Route: 048
     Dates: start: 202005

REACTIONS (2)
  - Off label use [Unknown]
  - Malignant neoplasm progression [Unknown]
